FAERS Safety Report 7013258-X (Version None)
Quarter: 2010Q3

REPORT INFORMATION
  Report Type: 
  Country: None (occurrence: None)
  Receive Date: 20100909
  Receipt Date: 20100716
  Transmission Date: 20110219
  Serious: Yes (Other)
  Sender: FDA-Public Use
  Company Number: 2010SP039379

PATIENT

DRUGS (1)
  1. SAPHRIS [Suspect]
     Indication: PRODUCT USED FOR UNKNOWN INDICATION
     Dosage: 5 MG ; BID;UNK

REACTIONS (4)
  - EXTRAPYRAMIDAL DISORDER [None]
  - HYPOKINESIA [None]
  - MUSCLE RIGIDITY [None]
  - PAIN IN EXTREMITY [None]
